FAERS Safety Report 9200547 (Version 1)
Quarter: 2013Q1

REPORT INFORMATION
  Report Type: Other
  Country: IT (occurrence: IT)
  Receive Date: 20130329
  Receipt Date: 20130329
  Transmission Date: 20140127
  Serious: Yes (Hospitalization)
  Sender: FDA-Public Use
  Company Number: IT-WATSON-2013-05434

PATIENT
  Age: 7 Year
  Sex: Female

DRUGS (3)
  1. IBUPROFEN (UNKNOWN) [Suspect]
     Indication: PYREXIA
     Dosage: 14 ML, DAILY
     Route: 048
     Dates: start: 20121017, end: 20121020
  2. PERIDON                            /00498201/ [Concomitant]
     Indication: ABDOMINAL PAIN UPPER
     Dosage: UNK UNK, UNKNOWN
     Route: 065
     Dates: start: 20121019, end: 20121020
  3. ALGINOR [Concomitant]
     Indication: ABDOMINAL PAIN UPPER

REACTIONS (6)
  - Renal failure [Recovered/Resolved]
  - Tachypnoea [Recovered/Resolved]
  - Chromaturia [Recovered/Resolved]
  - Acute hepatic failure [Recovered/Resolved]
  - Vomiting [Recovered/Resolved]
  - Jaundice [Recovered/Resolved]
